FAERS Safety Report 7018516-0 (Version None)
Quarter: 2010Q3

REPORT INFORMATION
  Report Type: 
  Country: None (occurrence: None)
  Receive Date: 20100924
  Receipt Date: 20100831
  Transmission Date: 20110219
  Serious: Yes (Other)
  Sender: FDA-Public Use
  Company Number: ALA_00702_2010

PATIENT
  Sex: Female

DRUGS (1)
  1. REGLAN [Suspect]
     Indication: NAUSEA
     Dosage: DF ORAL
     Route: 048
     Dates: start: 20100601, end: 20100801

REACTIONS (6)
  - FACIAL SPASM [None]
  - MOBILITY DECREASED [None]
  - MUSCLE SPASMS [None]
  - NERVE COMPRESSION [None]
  - NEUROMYOPATHY [None]
  - PAIN [None]
